FAERS Safety Report 23322527 (Version 1)
Quarter: 2023Q4

REPORT INFORMATION
  Report Type: Spontaneous
  Country: US (occurrence: None)
  Receive Date: 20231220
  Receipt Date: 20231220
  Transmission Date: 20240110
  Serious: No
  Sender: FDA-Public Use
  Company Number: None

PATIENT

DRUGS (2)
  1. POVIDONE-IODINE [Suspect]
     Active Substance: POVIDONE-IODINE
  2. POVIDONE-IODINE [Suspect]
     Active Substance: POVIDONE-IODINE

REACTIONS (2)
  - Product packaging confusion [None]
  - Product appearance confusion [None]
